FAERS Safety Report 7979450-2 (Version None)
Quarter: 2011Q4

REPORT INFORMATION
  Report Type: 
  Country: None (occurrence: None)
  Receive Date: 20111214
  Receipt Date: 20111206
  Transmission Date: 20120403
  Serious: Yes (Hospitalization)
  Sender: FDA-Public Use
  Company Number: PHEH2011US011150

PATIENT
  Sex: Male

DRUGS (5)
  1. TESTOSTERONE [Concomitant]
     Route: 042
     Dates: start: 20100101
  2. DILAUDID [Concomitant]
     Indication: PAIN
     Dates: start: 20080101
  3. METHADONE HCL [Concomitant]
     Indication: PAIN
     Route: 048
     Dates: start: 20060101
  4. EXJADE [Suspect]
     Indication: IRON OVERLOAD
     Dosage: 1500 MG, QD
     Route: 048
  5. FOLIC ACID [Concomitant]
     Route: 048
     Dates: start: 20090101

REACTIONS (1)
  - PNEUMONIA [None]
